FAERS Safety Report 23616889 (Version 2)
Quarter: 2024Q1

REPORT INFORMATION
  Report Type: Spontaneous
  Country: ES (occurrence: ES)
  Receive Date: 20240311
  Receipt Date: 20240328
  Transmission Date: 20240410
  Serious: Yes (Life-Threatening, Hospitalization, Other)
  Sender: FDA-Public Use
  Company Number: None

PATIENT
  Age: 69 Month
  Sex: Male

DRUGS (1)
  1. ETANERCEPT [Suspect]
     Active Substance: ETANERCEPT
     Indication: Psoriasis
     Dosage: 50 MILLIGRAM, QWK (50 MG, WEEKLY (FREQUENCY: 7 DAYS, 1 OR 2 DOSES PER WEEK ARE GIVEN AS NEEDED)
     Route: 058
     Dates: start: 20210614, end: 20231011

REACTIONS (3)
  - Pneumonia pneumococcal [Recovered/Resolved]
  - Pneumococcal bacteraemia [Recovered/Resolved]
  - Septic arthritis streptococcal [Recovering/Resolving]

NARRATIVE: CASE EVENT DATE: 20231011
